FAERS Safety Report 20774185 (Version 1)
Quarter: 2022Q2

REPORT INFORMATION
  Report Type: Spontaneous
  Country: US (occurrence: None)
  Receive Date: 20220429
  Receipt Date: 20220429
  Transmission Date: 20220721
  Serious: Yes (Death)
  Sender: FDA-Public Use
  Company Number: None

PATIENT
  Age: 61 Year
  Sex: Female

DRUGS (11)
  1. TACROLIMUS [Suspect]
     Active Substance: TACROLIMUS
     Indication: Transplant
     Dosage: FREQUENCY : DAILY;?
     Route: 048
     Dates: start: 20201010, end: 20220420
  2. AMLODIPINE [Concomitant]
     Active Substance: AMLODIPINE BESYLATE
  3. INSULIN ASPART [Concomitant]
     Active Substance: INSULIN ASPART
  4. BUMETANIDE [Concomitant]
     Active Substance: BUMETANIDE
  5. PANTOPRAZOLE [Concomitant]
     Active Substance: PANTOPRAZOLE
  6. MELATONIN [Concomitant]
     Active Substance: MELATONIN
  7. ISOSORBIDE [Concomitant]
     Active Substance: ISOSORBIDE
  8. HYDRALAZINE [Concomitant]
     Active Substance: HYDRALAZINE HYDROCHLORIDE
  9. PREDNISONE [Concomitant]
     Active Substance: PREDNISONE
  10. MAGNESIUM OXIDE [Concomitant]
     Active Substance: MAGNESIUM OXIDE
  11. DOCUSATE [Concomitant]
     Active Substance: DOCUSATE

REACTIONS (1)
  - Death [None]

NARRATIVE: CASE EVENT DATE: 20220420
